FAERS Safety Report 25487494 (Version 1)
Quarter: 2025Q2

REPORT INFORMATION
  Report Type: Spontaneous
  Country: DE (occurrence: DE)
  Receive Date: 20250627
  Receipt Date: 20250627
  Transmission Date: 20250717
  Serious: Yes (Life-Threatening, Other)
  Sender: SANOFI AVENTIS
  Company Number: DE-SA-2016SA185683

PATIENT
  Age: 5 Year
  Sex: Female

DRUGS (9)
  1. ACYCLOVIR [Suspect]
     Active Substance: ACYCLOVIR
     Indication: Infection prophylaxis
     Route: 065
  2. ACYCLOVIR [Suspect]
     Active Substance: ACYCLOVIR
     Dosage: 3 X 10 MG/KG/DAY OR 3 X 15 MG/KG/DAY DAYS 212 - 233; 260- 270
     Route: 065
  3. ANTI-THYMOCYTE GLOBULIN (RABBIT) NOS [Suspect]
     Active Substance: LAPINE T-LYMPHOCYTE IMMUNE GLOBULIN
  4. FLUDARABINE PHOSPHATE [Suspect]
     Active Substance: FLUDARABINE PHOSPHATE
  5. CIDOFOVIR [Suspect]
     Active Substance: CIDOFOVIR
     Indication: Infection prophylaxis
     Dosage: 5 MG/KG,QW
     Route: 065
  6. THIOTEPA [Suspect]
     Active Substance: THIOTEPA
  7. ALEMTUZUMAB [Concomitant]
     Active Substance: ALEMTUZUMAB
  8. CYCLOPHOSPHAMIDE [Concomitant]
     Active Substance: CYCLOPHOSPHAMIDE
  9. MELPHALAN [Concomitant]
     Active Substance: MELPHALAN

REACTIONS (16)
  - Herpes simplex reactivation [Recovered/Resolved]
  - Drug ineffective [Recovered/Resolved]
  - Drug resistance [Recovered/Resolved]
  - Stomatitis [Recovered/Resolved]
  - Pharyngitis [Recovered/Resolved]
  - Herpes simplex [Recovered/Resolved]
  - Adenovirus infection [Recovered/Resolved]
  - Adenovirus test positive [Recovered/Resolved]
  - Meningoencephalitis viral [Unknown]
  - Epstein-Barr virus test positive [Recovered/Resolved]
  - Mucosal inflammation [Unknown]
  - Nervous system disorder [Unknown]
  - Viraemia [Unknown]
  - Epstein-Barr virus infection [Unknown]
  - Viral load increased [Unknown]
  - Lymphoproliferative disorder [Unknown]
